FAERS Safety Report 6882516-1 (Version None)
Quarter: 2010Q3

REPORT INFORMATION
  Report Type: 
  Country: None (occurrence: None)
  Receive Date: 20100729
  Receipt Date: 20100720
  Transmission Date: 20110219
  Serious: Yes (Death)
  Sender: FDA-Public Use
  Company Number: US-PURDUE-USA-2010-0044872

PATIENT
  Sex: Male
  Weight: 68.481 kg

DRUGS (1)
  1. OXYCONTIN [Suspect]
     Indication: LUNG NEOPLASM MALIGNANT
     Dosage: 80 MG, BID
     Route: 048
     Dates: start: 20100405, end: 20100628

REACTIONS (1)
  - MALIGNANT NEOPLASM PROGRESSION [None]
